FAERS Safety Report 5195779-8 (Version None)
Quarter: 2007Q1

REPORT INFORMATION
  Report Type: 
  Country: None (occurrence: None)
  Receive Date: 20070102
  Receipt Date: 20061220
  Transmission Date: 20070707
  Serious: Yes (Other)
  Sender: FDA-Public Use
  Company Number: JP-ELI_LILLY_AND_COMPANY-JP200612003989

PATIENT
  Age: 12 Year
  Sex: Female

DRUGS (3)
  1. ZYPREXA [Suspect]
     Indication: PSYCHIATRIC SYMPTOM
     Route: 048
  2. RISPERIDONE [Concomitant]
     Indication: PSYCHIATRIC SYMPTOM
     Route: 065
  3. VALPROATE SODIUM [Concomitant]
     Indication: PSYCHIATRIC SYMPTOM
     Route: 065

REACTIONS (2)
  - HEPATIC FUNCTION ABNORMAL [None]
  - NEUROLEPTIC MALIGNANT SYNDROME [None]
